FAERS Safety Report 14284121 (Version 2)
Quarter: 2017Q4

REPORT INFORMATION
  Report Type: Report from Study
  Country: US (occurrence: US)
  Receive Date: 20171214
  Receipt Date: 20171226
  Transmission Date: 20180321
  Serious: Yes (Hospitalization)
  Sender: FDA-Public Use
  Company Number: US-UCBSA-2017034195

PATIENT
  Age: 57 Year
  Sex: Female
  Weight: 66 kg

DRUGS (4)
  1. CLONAZEPAM. [Concomitant]
     Active Substance: CLONAZEPAM
     Indication: SLEEP DISORDER
     Dosage: 5 MG, AS NEEDED (PRN)
     Route: 048
  2. TRILEPTAL [Concomitant]
     Active Substance: OXCARBAZEPINE
     Indication: SEIZURE
     Dosage: 900 MG, 2X/DAY (BID)
  3. LEVETIRACETAM. [Suspect]
     Active Substance: LEVETIRACETAM
     Indication: EPILEPSY
     Dosage: 1,000MG, 1.5 TABS EVERY 12 HRS
     Route: 048
  4. LEVETIRACETAM. [Suspect]
     Active Substance: LEVETIRACETAM
     Dosage: 2000 MG, 2X/DAY (BID)
     Route: 048

REACTIONS (4)
  - Brain operation [Recovered/Resolved]
  - Off label use [Unknown]
  - Drug dose omission [Unknown]
  - Overdose [Unknown]

NARRATIVE: CASE EVENT DATE: 20171011
